FAERS Safety Report 22191992 (Version 3)
Quarter: 2023Q2

REPORT INFORMATION
  Report Type: Spontaneous
  Country: IE (occurrence: IE)
  Receive Date: 20230410
  Receipt Date: 20230524
  Transmission Date: 20230721
  Serious: Yes (Hospitalization, Other)
  Sender: FDA-Public Use
  Company Number: IE-MYLANLABS-2022M1124859

PATIENT
  Age: 48 Year
  Sex: Male
  Weight: 120 kg

DRUGS (5)
  1. CLOZARIL [Suspect]
     Active Substance: CLOZAPINE
     Indication: Schizophrenia
     Dosage: UNK
     Route: 048
     Dates: start: 20170615, end: 20230403
  2. CLOZARIL [Suspect]
     Active Substance: CLOZAPINE
     Dosage: 200 MILLIGRAM, BID (50MG MANE 150MG NOCTE)
     Route: 048
     Dates: start: 20170615
  3. CLOZARIL [Suspect]
     Active Substance: CLOZAPINE
     Dosage: 400 MILLIGRAM, QD
     Route: 065
  4. QUETIAPINE [Concomitant]
     Active Substance: QUETIAPINE
     Dosage: 100 MILLIGRAM, QD
     Route: 048
  5. FLUOXETINE [Concomitant]
     Active Substance: FLUOXETINE HYDROCHLORIDE
     Dosage: 60 MILLIGRAM, QD
     Route: 048

REACTIONS (7)
  - Schizophrenia [Unknown]
  - Differential white blood cell count abnormal [Recovered/Resolved]
  - Eosinophil count increased [Recovered/Resolved]
  - Troponin increased [Unknown]
  - Gastric infection [Recovered/Resolved]
  - White blood cell count increased [Recovering/Resolving]
  - Neutrophil count increased [Recovered/Resolved]

NARRATIVE: CASE EVENT DATE: 20221109
